FAERS Safety Report 6051761-X (Version None)
Quarter: 2009Q1

REPORT INFORMATION
  Report Type: 
  Country: None (occurrence: None)
  Receive Date: 20090126
  Receipt Date: 20090120
  Transmission Date: 20090719
  Serious: Yes (Other)
  Sender: FDA-Public Use
  Company Number: US-JNJCH-2008058251

PATIENT

DRUGS (1)
  1. DESITIN DIAPER RASH [Suspect]
     Indication: DERMATITIS DIAPER
     Dosage: TEXT:UNSPECIFIED 4 TIMES
     Route: 061

REACTIONS (6)
  - APPLICATION SITE DISCOLOURATION [None]
  - APPLICATION SITE INFECTION [None]
  - APPLICATION SITE RASH [None]
  - APPLICATION SITE SCAB [None]
  - EXPIRED DRUG ADMINISTERED [None]
  - PRODUCT CONTAMINATION [None]
